FAERS Safety Report 5679432-X (Version None)
Quarter: 2008Q1

REPORT INFORMATION
  Report Type: 
  Country: None (occurrence: None)
  Receive Date: 20080325
  Receipt Date: 20080314
  Transmission Date: 20080703
  Serious: Yes (Other)
  Sender: FDA-Public Use
  Company Number: US-ELI_LILLY_AND_COMPANY-US200803003615

PATIENT
  Age: 35 Year
  Sex: Female

DRUGS (5)
  1. CYMBALTA [Suspect]
     Indication: DEPRESSION
     Dosage: 60 MG, DAILY (1/D)
     Dates: end: 20080201
  2. CYMBALTA [Suspect]
     Dosage: 30 MG, DAILY (1/D)
     Dates: start: 20080201, end: 20080301
  3. CYMBALTA [Suspect]
     Dosage: 30 MG, QOD
     Dates: start: 20080301, end: 20080301
  4. CYMBALTA [Suspect]
     Dosage: 30 MG, OTHER
     Dates: start: 20080301, end: 20080309
  5. PREVACID [Concomitant]
     Dosage: 1 D/F, DAILY (1/D)

REACTIONS (5)
  - CEREBROVASCULAR ACCIDENT [None]
  - DRUG WITHDRAWAL SYNDROME [None]
  - INFLUENZA LIKE ILLNESS [None]
  - VOMITING [None]
  - WEIGHT INCREASED [None]
